FAERS Safety Report 8604959 (Version 2)
Quarter: 2014Q1

REPORT INFORMATION
  Report Type: Spontaneous
  Country: US (occurrence: None)
  Receive Date: 20120323
  Receipt Date: 20130305
  Transmission Date: 20141002
  Serious: Yes (Hospitalization)
  Sender: FDA-Public Use
  Company Number: 163-21880-11043806

PATIENT
  Age: 67 Year
  Sex: Male
  Weight: 108.86 kg

DRUGS (13)
  1. REVLIMID (LENALIDOMIDE) (25 MILLIGRAM, CAPSULES) [Suspect]
     Indication: PLASMA CELL MYELOMA
     Route: 048
     Dates: start: 201104
  2. VELCADE [Concomitant]
  3. SYNTHROID [Concomitant]
  4. DECADRON [Concomitant]
  5. PRILOSEC [Concomitant]
  6. TERAZOSIN HYDROCHLORIDE [Concomitant]
  7. AVODART [Concomitant]
  8. ATENOLOL (ATENOLOL) [Concomitant]
  9. LIPITOR [Concomitant]
  10. ZOLOFT [Concomitant]
  11. ASPIRIN (ACETYLSALICYLIC ACID) [Concomitant]
  12. ACYCLOVIR [Concomitant]
  13. PERCOCET [Concomitant]

REACTIONS (2)
  - Anaemia [None]
  - Drug ineffective [None]
